FAERS Safety Report 10545282 (Version 17)
Quarter: 2015Q4

REPORT INFORMATION
  Report Type: Report from Study
  Country: FR (occurrence: FR)
  Receive Date: 20141027
  Receipt Date: 20151228
  Transmission Date: 20160304
  Serious: Yes (Death, Hospitalization)
  Sender: FDA-Public Use
  Company Number: FR-009507513-1409FRA011899

PATIENT
  Age: 58 Year
  Sex: Female
  Weight: 78 kg

DRUGS (8)
  1. PEMBROLIZUMAB. [Suspect]
     Active Substance: PEMBROLIZUMAB
     Indication: NEOPLASM MALIGNANT
     Dosage: 10 MG/KG, Q2W
     Route: 042
     Dates: start: 20140428, end: 20140822
  2. PEMBROLIZUMAB. [Suspect]
     Active Substance: PEMBROLIZUMAB
     Dosage: 10 MG/KG, Q2W
     Route: 042
     Dates: start: 20140919, end: 20140919
  3. PEMBROLIZUMAB. [Suspect]
     Active Substance: PEMBROLIZUMAB
     Dosage: 10 MG/KG, Q2W
     Route: 042
     Dates: start: 20141105, end: 20141105
  4. MAGNE B6 [Concomitant]
     Active Substance: MAGNESIUM\PYRIDOXINE
     Indication: HYPOMAGNESAEMIA
     Dosage: UNKNOWN FREQUENCY
     Route: 048
     Dates: start: 20140721
  5. TOPALGIC (TRAMADOL HYDROCHLORIDE) [Concomitant]
     Active Substance: TRAMADOL
     Indication: NEURALGIA
     Dosage: 200 MG, BID
     Route: 048
     Dates: start: 20140619, end: 20141005
  6. NEURONTIN [Concomitant]
     Active Substance: GABAPENTIN
     Indication: NEURALGIA
     Dosage: TOTAL DAILY DOSE 3600 MG, (TID)
     Route: 048
     Dates: start: 20140630
  7. VERSATIS [Concomitant]
     Active Substance: LIDOCAINE
     Indication: NEURALGIA
     Dosage: 1 PATCH, QD
     Route: 061
     Dates: start: 20140619
  8. PEMBROLIZUMAB. [Suspect]
     Active Substance: PEMBROLIZUMAB
     Dosage: 10 MG/KG, Q2W
     Route: 042
     Dates: start: 20140905, end: 20140905

REACTIONS (4)
  - Intestinal ischaemia [Fatal]
  - Colitis [Not Recovered/Not Resolved]
  - Food intolerance [Recovered/Resolved]
  - Device related sepsis [Recovered/Resolved]

NARRATIVE: CASE EVENT DATE: 20140915
